FAERS Safety Report 12353525 (Version 2)
Quarter: 2016Q2

REPORT INFORMATION
  Report Type: Spontaneous
  Country: DE (occurrence: DE)
  Receive Date: 20160511
  Receipt Date: 20160609
  Transmission Date: 20160815
  Serious: Yes (Other)
  Sender: FDA-Public Use
  Company Number: GXKR2016DE002262

PATIENT
  Age: 91 Year
  Sex: Female

DRUGS (6)
  1. LOSARTAN 1A PHARMA [Concomitant]
     Indication: HYPERTENSION
     Dosage: 100 MG, QD
     Route: 048
  2. LERCANIDIPINE [Concomitant]
     Active Substance: LERCANIDIPINE
     Indication: HYPERTENSION
  3. CRATAEGUS [Concomitant]
     Active Substance: HAWTHORN LEAF WITH FLOWER
     Indication: PRODUCT USED FOR UNKNOWN INDICATION
  4. CARVEDILOL 1A PHARMA [Suspect]
     Active Substance: CARVEDILOL
     Indication: HYPERTENSION
     Dosage: 12.5 MG, BID
     Route: 048
  5. ASPIRIN. [Concomitant]
     Active Substance: ASPIRIN
     Indication: PRODUCT USED FOR UNKNOWN INDICATION
  6. MOLSIDOMIN [Concomitant]
     Indication: PRODUCT USED FOR UNKNOWN INDICATION
     Route: 048

REACTIONS (2)
  - Syncope [Unknown]
  - Loss of consciousness [Unknown]
